FAERS Safety Report 20918972 (Version 1)
Quarter: 2022Q2

REPORT INFORMATION
  Report Type: Spontaneous
  Country: US (occurrence: US)
  Receive Date: 20220606
  Receipt Date: 20220606
  Transmission Date: 20220720
  Serious: No
  Sender: FDA-Public Use
  Company Number: US-GALDERMA-US2022007351

PATIENT

DRUGS (6)
  1. PROACTIV MD ADAPALENE ACNE TREATMENT [Suspect]
     Active Substance: ADAPALENE
     Indication: Product used for unknown indication
     Dosage: 1 DOSAGE FORM, QD, EVERYDAY
     Route: 061
     Dates: start: 202203, end: 202205
  2. Proactiv MD Ultra Gentle Cleanser [Concomitant]
     Indication: Product used for unknown indication
     Dosage: 1 DOSAGE FORM, QD, EVERYDAY
     Route: 061
     Dates: start: 202203, end: 202205
  3. Proactiv MD Ultra Hydrating Moisturizer [Concomitant]
     Indication: Product used for unknown indication
     Dosage: 1 DOSAGE FORM, QD, EVERYDAY
     Route: 061
     Dates: start: 202203, end: 202205
  4. PROACTIV ACNE BODY WASH [Concomitant]
     Active Substance: SALICYLIC ACID
     Indication: Product used for unknown indication
     Dosage: 1 DOSAGE FORM, QD, EVERYDAY
     Route: 061
     Dates: start: 202203, end: 202205
  5. Proactiv Amazonian Clay Mask [Concomitant]
     Indication: Product used for unknown indication
     Dosage: 1 DOSAGE FORM, QD, EVERYDAY
     Route: 061
     Dates: start: 202203, end: 202205
  6. Proactiv Post Acne Scar Gel [Concomitant]
     Indication: Product used for unknown indication
     Dosage: 1 DOSAGE FORM, QD, EVERYDAY
     Route: 061
     Dates: start: 202203, end: 202205

REACTIONS (2)
  - Skin irritation [Unknown]
  - Sensitive skin [Unknown]

NARRATIVE: CASE EVENT DATE: 20220101
